FAERS Safety Report 8533248-5 (Version None)
Quarter: 2012Q3

REPORT INFORMATION
  Report Type: 
  Country: None (occurrence: None)
  Receive Date: 20120724
  Receipt Date: 20120713
  Transmission Date: 20120928
  Serious: Yes (Hospitalization)
  Sender: FDA-Public Use
  Company Number: US-VERTEX PHARMACEUTICALS INC.-AE-2012-007300

PATIENT
  Sex: Male
  Weight: 108.96 kg

DRUGS (5)
  1. PEG-INTRON [Concomitant]
     Route: 058
     Dates: start: 20120429
  2. RIBAVIRIN [Concomitant]
     Indication: HEPATITIS C
     Dates: start: 20020601
  3. RIBAVIRIN [Concomitant]
     Dates: start: 20120429
  4. PEG-INTRON [Concomitant]
     Indication: HEPATITIS C
     Route: 058
     Dates: start: 20020626
  5. INCIVEK [Suspect]
     Indication: HEPATITIS C
     Route: 048
     Dates: start: 20120429

REACTIONS (11)
  - DYSARTHRIA [None]
  - DISORIENTATION [None]
  - LETHARGY [None]
  - PROCTALGIA [None]
  - AMMONIA INCREASED [None]
  - DIARRHOEA [None]
  - DEHYDRATION [None]
  - ANAL PRURITUS [None]
  - FATIGUE [None]
  - COORDINATION ABNORMAL [None]
  - DYSGEUSIA [None]
